FAERS Safety Report 19058983 (Version 2)
Quarter: 2021Q2

REPORT INFORMATION
  Report Type: Report from Study
  Country: US (occurrence: US)
  Receive Date: 20210325
  Receipt Date: 20210504
  Transmission Date: 20210717
  Serious: Yes (Other)
  Sender: FDA-Public Use
  Company Number: US-TAKEDA-2021TUS017759

PATIENT
  Age: 72 Year
  Sex: Female

DRUGS (1)
  1. LANADELUMAB [Suspect]
     Active Substance: LANADELUMAB
     Indication: PROPHYLAXIS
     Dosage: 300 MILLIGRAM, Q2WEEKS
     Route: 058
     Dates: start: 20210202

REACTIONS (3)
  - Hereditary angioedema [Recovered/Resolved]
  - Nerve block [Unknown]
  - Oral surgery [Unknown]

NARRATIVE: CASE EVENT DATE: 202102
